FAERS Safety Report 19779405 (Version 12)
Quarter: 2022Q2

REPORT INFORMATION
  Report Type: Spontaneous
  Country: US (occurrence: US)
  Receive Date: 20210902
  Receipt Date: 20220414
  Transmission Date: 20220721
  Serious: Yes (Other)
  Sender: FDA-Public Use
  Company Number: US-PFIZER INC-202100941857

PATIENT
  Age: 80 Year
  Sex: Female

DRUGS (5)
  1. EUCRISA [Suspect]
     Active Substance: CRISABOROLE
     Indication: Rash
     Dosage: UNK, 2X/DAY
     Route: 061
  2. EUCRISA [Suspect]
     Active Substance: CRISABOROLE
     Indication: Psoriasis
  3. EUCRISA [Suspect]
     Active Substance: CRISABOROLE
     Indication: Neurodermatitis
  4. EUCRISA [Suspect]
     Active Substance: CRISABOROLE
     Indication: Eczema
  5. ADVAIR HFA [Concomitant]
     Active Substance: FLUTICASONE PROPIONATE\SALMETEROL XINAFOATE
     Indication: Mycotic allergy

REACTIONS (5)
  - Foot fracture [Unknown]
  - Off label use [Unknown]
  - Pruritus [Not Recovered/Not Resolved]
  - Stress [Unknown]
  - Burning sensation [Not Recovered/Not Resolved]
